FAERS Safety Report 12694398 (Version 5)
Quarter: 2016Q4

REPORT INFORMATION
  Report Type: Report from Study
  Country: IT (occurrence: IT)
  Receive Date: 20160829
  Receipt Date: 20161205
  Transmission Date: 20170207
  Serious: Yes (Death, Hospitalization)
  Sender: FDA-Public Use
  Company Number: IT-VERTEX PHARMACEUTICALS-2016-004976

PATIENT
  Age: 24 Year
  Sex: Male
  Weight: 63 kg

DRUGS (11)
  1. COLFINAIR [Concomitant]
     Dosage: 2M IU BID FOR 4 WEEK CYCLE ALTERNATING WITH TOBI
  2. OXYGEN. [Concomitant]
     Active Substance: OXYGEN
     Indication: PSEUDOMONAS INFECTION
     Dosage: 2,5?3 L/MIN FOR 24HOURS
  3. NUTRIDRINK [Concomitant]
     Dosage: 1-2 A DAY
  4. ORKAMBI [Suspect]
     Active Substance: IVACAFTOR\LUMACAFTOR
     Dosage: 1 DF, BID
     Route: 048
     Dates: start: 20160703, end: 20160731
  5. ORKAMBI [Suspect]
     Active Substance: IVACAFTOR\LUMACAFTOR
     Indication: CYSTIC FIBROSIS
     Dosage: 400-250MG, BID
     Route: 048
     Dates: start: 20160411, end: 20160623
  6. ALIFLUS [Concomitant]
     Active Substance: FLUTICASONE PROPIONATE\SALMETEROL XINAFOATE
     Dosage: 2 PUFF, BID
  7. TOBI [Concomitant]
     Active Substance: TOBRAMYCIN
     Dosage: 1 VIAL FOR 4 WEEKS ALTERNATED WITH COLFINAIR
  8. OXYGEN. [Concomitant]
     Active Substance: OXYGEN
     Indication: DYSPNOEA
  9. CREON [Concomitant]
     Active Substance: PANCRELIPASE AMYLASE\PANCRELIPASE LIPASE\PANCRELIPASE PROTEASE
     Dosage: 4+6+4+6 TABLETS DURING THE NIGHT
  10. DEURSIL RR [Concomitant]
     Dosage: 1 DF, QD
  11. ZITROMAX [Concomitant]
     Active Substance: AZITHROMYCIN
     Dosage: 1 DF, THREE DAYS A WEEK

REACTIONS (3)
  - Infective pulmonary exacerbation of cystic fibrosis [Recovered/Resolved with Sequelae]
  - Acute respiratory failure [Fatal]
  - Respiratory failure [Recovered/Resolved]

NARRATIVE: CASE EVENT DATE: 20160623
